FAERS Safety Report 20079924 (Version 1)
Quarter: 2021Q4

REPORT INFORMATION
  Report Type: Spontaneous
  Country: DE (occurrence: DE)
  Receive Date: 20211117
  Receipt Date: 20211117
  Transmission Date: 20220303
  Serious: Yes (Hospitalization)
  Sender: FDA-Public Use
  Company Number: DE-ADRED-05870-01

PATIENT
  Age: 79 Year
  Sex: Male
  Weight: 84 kg

DRUGS (6)
  1. APIXABAN [Suspect]
     Active Substance: APIXABAN
     Indication: Product used for unknown indication
     Dosage: 5 MILLIGRAM, BID
     Route: 048
  2. SPIRONOLACTONE [Suspect]
     Active Substance: SPIRONOLACTONE
     Indication: Product used for unknown indication
     Dosage: UNK (50 MG, 0.5-0-0-0, TABLETTEN)
     Route: 048
  3. ENTRESTO [Suspect]
     Active Substance: SACUBITRIL\VALSARTAN
     Indication: Product used for unknown indication
     Dosage: 51|49 MG, 1-0-1-0, TABLETTEN
     Route: 048
  4. TORSEMIDE [Suspect]
     Active Substance: TORSEMIDE
     Indication: Product used for unknown indication
     Dosage: 10 MILLIGRAM, QD (10 MG, 1-0-0-0, TABLETTEN)
     Route: 048
  5. METOPROLOL [Concomitant]
     Active Substance: METOPROLOL
     Dosage: 47.5 MILLIGRAM, BID (47.5 MG, 1-0-1-0, RETARD-TABLETTEN)
     Route: 048
  6. DIGITOXIN [Concomitant]
     Active Substance: DIGITOXIN
     Dosage: 0.07 MILLIGRAM, QD (0.07 MG, 0-0-1-0, TABLETTEN)
     Route: 048

REACTIONS (1)
  - Dyspnoea [Unknown]

NARRATIVE: CASE EVENT DATE: 20200620
